FAERS Safety Report 5983922-X (Version None)
Quarter: 2008Q4

REPORT INFORMATION
  Report Type: 
  Country: None (occurrence: None)
  Receive Date: 20081208
  Receipt Date: 20081201
  Transmission Date: 20090506
  Serious: Yes (Other)
  Sender: FDA-Public Use
  Company Number: US-ASTRAZENECA-2008UW26778

PATIENT
  Age: 61 Year
  Sex: Female
  Weight: 97.5 kg

DRUGS (4)
  1. CRESTOR [Suspect]
     Indication: BLOOD CHOLESTEROL INCREASED
     Dosage: 10MG
     Route: 048
     Dates: start: 20080709
  2. CRESTOR [Suspect]
     Dosage: 5MG
     Route: 048
     Dates: start: 20080709
  3. ASPIRIN [Concomitant]
  4. FISH OIL [Concomitant]

REACTIONS (2)
  - DYSURIA [None]
  - MYALGIA [None]
